FAERS Safety Report 25169569 (Version 3)
Quarter: 2025Q2

REPORT INFORMATION
  Report Type: Report from Study
  Country: US (occurrence: US)
  Receive Date: 20250407
  Receipt Date: 20250526
  Transmission Date: 20250717
  Serious: Yes (Other)
  Sender: BAUSCH AND LOMB
  Company Number: US-BAUSCHBL-2025BNL005671

PATIENT
  Age: 58 Year
  Sex: Female
  Weight: 65.77 kg

DRUGS (1)
  1. MIEBO [Suspect]
     Active Substance: PERFLUOROHEXYLOCTANE
     Indication: Product used for unknown indication
     Route: 047
     Dates: start: 20240826

REACTIONS (5)
  - Retinal tear [Unknown]
  - Vitreous detachment [Unknown]
  - Eye laser surgery [Unknown]
  - Vitreous floaters [Unknown]
  - Abnormal sensation in eye [Unknown]
